FAERS Safety Report 9840399 (Version 1)
Quarter: 2014Q1

REPORT INFORMATION
  Report Type: Spontaneous
  Country: US (occurrence: US)
  Receive Date: 20140124
  Receipt Date: 20140124
  Transmission Date: 20141002
  Serious: Yes (Other)
  Sender: FDA-Public Use
  Company Number: US-ROCHE-1336617

PATIENT
  Age: 78 Year
  Sex: Male

DRUGS (10)
  1. VISMODEGIB [Suspect]
     Indication: BASAL CELL CARCINOMA
     Route: 048
  2. WARFARIN [Interacting]
     Indication: DEEP VEIN THROMBOSIS
     Dosage: 5 MG ON MONDAY AND 7.5 MG ON ALL OTHERS DAY,WEEKLY TOTAL DOSE 55 MG
     Route: 048
  3. WARFARIN [Interacting]
     Dosage: 7.5 MG ON MONDAY AND 5 MG ON ALL OTHERS DAY, WEEKLY TOTAL DOSE 37.5 MG
     Route: 048
  4. WARFARIN [Interacting]
     Route: 048
  5. PRAVASTATIN [Concomitant]
     Route: 065
  6. HYDROCHLOROTHIAZIDE [Concomitant]
     Route: 065
  7. LISINOPRIL [Concomitant]
     Route: 065
  8. FLUOXETINE [Concomitant]
     Route: 065
  9. FERROUS SULFATE [Concomitant]
     Route: 065
  10. PHENYTOIN SODIUM, EXTENDED [Concomitant]
     Route: 065

REACTIONS (3)
  - International normalised ratio increased [Unknown]
  - Drug interaction [Unknown]
  - Weight decreased [Unknown]
